FAERS Safety Report 8586907-2 (Version None)
Quarter: 2012Q3

REPORT INFORMATION
  Report Type: 
  Country: None (occurrence: None)
  Receive Date: 20120810
  Receipt Date: 20120730
  Transmission Date: 20120928
  Serious: Yes (Other)
  Sender: FDA-Public Use
  Company Number: CHPA2012US012675

PATIENT
  Age: 62 Year
  Sex: Female

DRUGS (2)
  1. EXCEDRIN EXTRA STRENGTH TABLETS [Suspect]
     Indication: HEADACHE
     Dosage: 2 TABLETS AS NEEDED BID-TID
     Route: 048
     Dates: start: 20111001
  2. DIOVAN [Concomitant]
     Indication: HYPERTENSION
     Dosage: UNK (80 MG)
     Dates: start: 19970101

REACTIONS (4)
  - MALAISE [None]
  - DIARRHOEA [None]
  - COLITIS MICROSCOPIC [None]
  - ABDOMINAL PAIN [None]
